FAERS Safety Report 14119108 (Version 1)
Quarter: 2017Q4

REPORT INFORMATION
  Report Type: Spontaneous
  Country: US (occurrence: None)
  Receive Date: 20171023
  Receipt Date: 20171023
  Transmission Date: 20180321
  Serious: No
  Sender: FDA-Public Use
  Company Number: None

PATIENT
  Age: 45 Year
  Sex: Female

DRUGS (1)
  1. COSENTYX [Suspect]
     Active Substance: SECUKINUMAB
     Dosage: FREQUENCY - Q4W
     Route: 058
     Dates: start: 20170701

REACTIONS (2)
  - Psoriasis [None]
  - Rash [None]

NARRATIVE: CASE EVENT DATE: 20171001
